FAERS Safety Report 20333448 (Version 33)
Quarter: 2024Q4

REPORT INFORMATION
  Report Type: Spontaneous
  Country: US (occurrence: US)
  Receive Date: 20220113
  Receipt Date: 20241213
  Transmission Date: 20250114
  Serious: Yes (Other)
  Sender: PFIZER
  Company Number: US-PFIZER INC-202101882172

PATIENT
  Age: 74 Year
  Sex: Female

DRUGS (5)
  1. IBRANCE [Suspect]
     Active Substance: PALBOCICLIB
     Indication: Invasive lobular breast carcinoma
     Dosage: DAILY, 28 DAY SUPPLY
     Route: 048
     Dates: start: 202105
  2. IBRANCE [Suspect]
     Active Substance: PALBOCICLIB
     Indication: Breast cancer female
     Dosage: 125 MG
     Route: 048
  3. IBRANCE [Suspect]
     Active Substance: PALBOCICLIB
     Dosage: TAKE DAILY DAYS 1-21- THEN 7 DAYS OFF, AND REPEAT
     Route: 048
     Dates: start: 20221220
  4. IBRANCE [Suspect]
     Active Substance: PALBOCICLIB
     Dosage: DAILY DAYS 1-21 THEN 7 DAYS OFF, AND REPEAT
     Route: 048
  5. ANASTROZOLE [Concomitant]
     Active Substance: ANASTROZOLE
     Dosage: UNK

REACTIONS (16)
  - Blindness [Unknown]
  - Macular degeneration [Not Recovered/Not Resolved]
  - Alopecia [Unknown]
  - Fatigue [Unknown]
  - Asthenia [Unknown]
  - Chronic obstructive pulmonary disease [Unknown]
  - Malaise [Not Recovered/Not Resolved]
  - Eye disorder [Unknown]
  - Hypotension [Unknown]
  - Pain [Unknown]
  - Illness [Unknown]
  - Diarrhoea [Not Recovered/Not Resolved]
  - Cognitive disorder [Unknown]
  - Headache [Unknown]
  - Auditory disorder [Unknown]
  - Dyspnoea [Unknown]

NARRATIVE: CASE EVENT DATE: 20211101
